FAERS Safety Report 9564923 (Version 1)
Quarter: 2013Q3

REPORT INFORMATION
  Report Type: Spontaneous
  Country: BR (occurrence: BR)
  Receive Date: 20130930
  Receipt Date: 20130930
  Transmission Date: 20140515
  Serious: Yes (Other)
  Sender: FDA-Public Use
  Company Number: BR-PFIZER INC-2013276425

PATIENT
  Age: 59 Year
  Sex: Female
  Weight: 49 kg

DRUGS (7)
  1. LYRICA [Suspect]
     Dosage: UNK
  2. DIAZEPAM [Concomitant]
  3. FLUOXETINE [Concomitant]
  4. PARACETAMOL [Concomitant]
  5. RIVOTRIL [Concomitant]
  6. TEGRETOL [Concomitant]
  7. TRAMAL [Concomitant]

REACTIONS (9)
  - Cerebrovascular accident [Unknown]
  - Blindness unilateral [Unknown]
  - Cerebral cyst [Unknown]
  - Osteitis [Unknown]
  - Spinal disorder [Unknown]
  - Muscle disorder [Unknown]
  - Pain [Not Recovered/Not Resolved]
  - Osteoporosis [Not Recovered/Not Resolved]
  - Muscle spasms [Not Recovered/Not Resolved]
